FAERS Safety Report 5833614-2 (Version None)
Quarter: 2008Q3

REPORT INFORMATION
  Report Type: 
  Country: None (occurrence: None)
  Receive Date: 20080805
  Receipt Date: 20080728
  Transmission Date: 20090109
  Serious: Yes (Death, Hospitalization)
  Sender: FDA-Public Use
  Company Number: GB-AVENTIS-200713636GDDC

PATIENT
  Age: 70 Year
  Weight: 83 kg

DRUGS (12)
  1. LANTUS [Suspect]
     Route: 058
  2. ASPIRIN [Concomitant]
  3. ATENOLOL [Concomitant]
  4. FOLIC ACID [Concomitant]
  5. GLICLAZIDE [Concomitant]
     Route: 048
     Dates: start: 20040914, end: 20061123
  6. GLICLAZIDE [Concomitant]
     Route: 048
     Dates: start: 20061123
  7. METFORMIN HCL [Concomitant]
     Route: 048
     Dates: start: 20050627
  8. METHOTREXATE [Concomitant]
     Route: 048
     Dates: start: 20030528
  9. ACETAMINOPHEN [Concomitant]
  10. PRAVASTATIN [Concomitant]
  11. RAMIPRIL [Concomitant]
  12. SENNA [Concomitant]

REACTIONS (3)
  - HYPOGLYCAEMIA [None]
  - RENAL FAILURE ACUTE [None]
  - RHABDOMYOLYSIS [None]
